FAERS Safety Report 23439468 (Version 2)
Quarter: 2024Q1

REPORT INFORMATION
  Report Type: Spontaneous
  Country: PL (occurrence: PL)
  Receive Date: 20240124
  Receipt Date: 20240229
  Transmission Date: 20240409
  Serious: Yes (Hospitalization)
  Sender: FDA-Public Use
  Company Number: PL-ABBVIE-5593785

PATIENT
  Age: 77 Year
  Sex: Male

DRUGS (12)
  1. VENETOCLAX [Suspect]
     Active Substance: VENETOCLAX
     Indication: Acute myeloid leukaemia
     Dosage: DURATION TEXT: CYCLE 1?FREQUENCY TEXT: CYCLE 2?FIRST ADMIN DATE AND LAST ADMIN DATE: 2023
     Route: 048
  2. VENETOCLAX [Suspect]
     Active Substance: VENETOCLAX
     Indication: Acute myeloid leukaemia
     Dosage: LAST ADMIN DATE 2023?DURATION TEXT: CYCLE 1?FREQUENCY TEXT: CYCLE 2
     Route: 048
     Dates: start: 20230821
  3. VENETOCLAX [Suspect]
     Active Substance: VENETOCLAX
     Indication: Acute myeloid leukaemia
     Dosage: DURATION TEXT: CYCLE 1?FREQUENCY TEXT: CYCLE 2
     Route: 048
     Dates: start: 20231011, end: 20231031
  4. VENETOCLAX [Suspect]
     Active Substance: VENETOCLAX
     Indication: Acute myeloid leukaemia
     Dosage: DURATION TEXT: CYCLE 1?FREQUENCY TEXT: CYCLE 2
     Route: 048
     Dates: start: 202308, end: 202308
  5. VENETOCLAX [Suspect]
     Active Substance: VENETOCLAX
     Indication: Acute myeloid leukaemia
     Dosage: DURATION TEXT: CYCLE 1?FREQUENCY TEXT: CYCLE 2
     Route: 048
     Dates: start: 202401, end: 202401
  6. VENETOCLAX [Suspect]
     Active Substance: VENETOCLAX
     Indication: Acute myeloid leukaemia
     Dosage: DURATION TEXT: CYCLE 1?FREQUENCY TEXT: CYCLE 2
     Route: 048
     Dates: start: 20231124, end: 20231207
  7. VENETOCLAX [Suspect]
     Active Substance: VENETOCLAX
     Indication: Acute myeloid leukaemia
     Dosage: 400 MILLIGRAM
     Route: 048
  8. VIDAZA [Concomitant]
     Active Substance: AZACITIDINE
     Indication: Acute myeloid leukaemia
     Dosage: 75 MG/M2?LAST ADMIN DATE: AUG 2023
     Dates: start: 20230821
  9. VIDAZA [Concomitant]
     Active Substance: AZACITIDINE
     Indication: Acute myeloid leukaemia
     Dosage: 75 MG/M2
     Dates: start: 202401, end: 202401
  10. VIDAZA [Concomitant]
     Active Substance: AZACITIDINE
     Indication: Acute myeloid leukaemia
     Dosage: 75 MG/M2?LAST ADMIN DATE OCT 2023
     Dates: start: 20231011
  11. VIDAZA [Concomitant]
     Active Substance: AZACITIDINE
     Indication: Acute myeloid leukaemia
     Dosage: 75 MG/M2
     Dates: start: 20231124
  12. GRANULOCYTE COLONY-STIMULATING FACTOR NOS [Concomitant]
     Active Substance: GRANULOCYTE COLONY-STIMULATING FACTOR NOS
     Indication: Product use in unapproved indication
     Dosage: 2 TIMES WITH A 3 DAY INTERVAL.

REACTIONS (12)
  - Haematotoxicity [Recovered/Resolved]
  - Pyrexia [Recovered/Resolved]
  - Haemoglobin decreased [Recovered/Resolved]
  - Neutrophil count decreased [Recovered/Resolved]
  - Platelet count decreased [Recovered/Resolved]
  - Platelet count decreased [Recovered/Resolved]
  - Platelet count decreased [Recovered/Resolved]
  - Platelet count decreased [Recovered/Resolved]
  - SARS-CoV-2 test positive [Recovered/Resolved]
  - Platelet count decreased [Recovered/Resolved]
  - Platelet count decreased [Recovering/Resolving]
  - Investigation abnormal [Unknown]

NARRATIVE: CASE EVENT DATE: 20230929
